FAERS Safety Report 7397097-6 (Version None)
Quarter: 2011Q2

REPORT INFORMATION
  Report Type: 
  Country: None (occurrence: None)
  Receive Date: 20110406
  Receipt Date: 20110111
  Transmission Date: 20111010
  Serious: Yes (Death)
  Sender: FDA-Public Use
  Company Number: A0905179A

PATIENT
  Sex: Male

DRUGS (8)
  1. MORPHINE [Concomitant]
     Route: 065
  2. DEXAMETHASONE [Concomitant]
     Route: 065
  3. VOTRIENT [Suspect]
     Indication: RENAL CANCER METASTATIC
     Dosage: 800MG PER DAY
     Route: 048
     Dates: start: 20101222
  4. NYSTATIN [Concomitant]
  5. METFORMIN [Concomitant]
  6. COD LIVER OIL [Concomitant]
     Route: 065
  7. IRON SUPPLEMENT [Concomitant]
     Route: 065
  8. DIAMICRON [Concomitant]

REACTIONS (8)
  - ONYCHOCLASIS [None]
  - DEATH [None]
  - CANDIDIASIS [None]
  - OEDEMA PERIPHERAL [None]
  - DRY SKIN [None]
  - BLOOD GLUCOSE INCREASED [None]
  - HYPERGLYCAEMIA [None]
  - HUNGER [None]
